FAERS Safety Report 8322016-5 (Version None)
Quarter: 2012Q2

REPORT INFORMATION
  Report Type: 
  Country: None (occurrence: None)
  Receive Date: 20120430
  Receipt Date: 20120427
  Transmission Date: 20120825
  Serious: Yes (Other)
  Sender: FDA-Public Use
  Company Number: VE-ROCHE-1063880

PATIENT
  Sex: Female
  Weight: 52 kg

DRUGS (1)
  1. MABTHERA [Suspect]
     Indication: RHEUMATOID ARTHRITIS
     Route: 041
     Dates: start: 20090903, end: 20110427

REACTIONS (2)
  - NEUTROPHILIA [None]
  - ARTHRALGIA [None]
